FAERS Safety Report 9697272 (Version 1)
Quarter: 2013Q4

REPORT INFORMATION
  Report Type: Spontaneous
  Country: US (occurrence: None)
  Receive Date: 20131119
  Receipt Date: 20131119
  Transmission Date: 20140711
  Serious: No
  Sender: FDA-Public Use
  Company Number: None

PATIENT
  Age: 43 Year
  Sex: Female
  Weight: 87.54 kg

DRUGS (1)
  1. RITUXAN [Suspect]
     Indication: RHEUMATOID ARTHRITIS
     Dosage: 1000ML IN 500SALINE  GIVEN INTO/UNDER THE SKIN
     Route: 058
     Dates: start: 20131118

REACTIONS (2)
  - Arthralgia [None]
  - Burning sensation [None]
